FAERS Safety Report 26085971 (Version 1)
Quarter: 2025Q4

REPORT INFORMATION
  Report Type: Spontaneous
  Country: US (occurrence: US)
  Receive Date: 20251125
  Receipt Date: 20251125
  Transmission Date: 20260118
  Serious: Yes (Hospitalization, Other)
  Sender: HIKMA
  Company Number: US-HIKMA PHARMACEUTICALS-US-H14001-25-12278

PATIENT
  Age: 16 Year
  Sex: Male
  Weight: 75 kg

DRUGS (2)
  1. IBUPROFEN [Suspect]
     Active Substance: IBUPROFEN
     Indication: Product used for unknown indication
     Dosage: UNK
     Route: 065
  2. ONDANSETRON [Suspect]
     Active Substance: ONDANSETRON
     Indication: Gastritis
     Dosage: 8 MILLIGRAMS
     Route: 065

REACTIONS (1)
  - Tubulointerstitial nephritis [Recovering/Resolving]
